FAERS Safety Report 5032422-2 (Version None)
Quarter: 2006Q2

REPORT INFORMATION
  Report Type: 
  Country: None (occurrence: None)
  Receive Date: 20060621
  Receipt Date: 20060621
  Transmission Date: 20061013
  Serious: Yes (Other)
  Sender: FDA-Public Use
  Company Number: None

PATIENT
  Sex: Female
  Weight: 31.7518 kg

DRUGS (1)
  1. GEODON [Suspect]
     Indication: BIPOLAR DISORDER
     Dosage: 60MG CAPSULES    2XDAY   PO
     Route: 048
     Dates: start: 20060520, end: 20060620

REACTIONS (4)
  - CHEST PAIN [None]
  - INSOMNIA [None]
  - NERVOUSNESS [None]
  - VISION BLURRED [None]
